FAERS Safety Report 3961598 (Version 3)
Quarter: 2017Q1

REPORT INFORMATION
  Report Type: Spontaneous
  Country: JP (occurrence: JP)
  Receive Date: 20030626
  Receipt Date: 20170213
  Transmission Date: 20170429
  Serious: Yes (Death, Life-Threatening, Hospitalization, Other)
  Sender: FDA-Public Use
  Company Number: JP-BRISTOL-MYERS SQUIBB COMPANY-12306841

PATIENT
  Age: 66 Year
  Sex: Male

DRUGS (8)
  1. 5-FU                               /00098801/ [Suspect]
     Active Substance: FLUOROURACIL
     Indication: NASOPHARYNGEAL CANCER
     Dosage: 1.6 G, QD
     Route: 042
     Dates: start: 19970402, end: 19970407
  2. BRIPLATIN [Suspect]
     Active Substance: CISPLATIN
     Indication: NASOPHARYNGEAL CANCER
     Dosage: 190 MG, QD
     Route: 013
     Dates: start: 19970402, end: 19970402
  3. BRIPLATIN [Suspect]
     Active Substance: CISPLATIN
     Indication: PRODUCT USED FOR UNKNOWN INDICATION
     Dosage: 90 MG, QD
     Route: 013
     Dates: start: 19970611, end: 19970611
  4. RADIOTHERAPY [Concomitant]
     Active Substance: RADIATION THERAPY
     Indication: PRODUCT USED FOR UNKNOWN INDICATION
     Dosage: ADMINISTERED AFTER COMPLETION OF CISPLATIN THERAPY
     Route: 065
  5. 5-FU                               /00098801/ [Suspect]
     Active Substance: FLUOROURACIL
     Indication: PRODUCT USED FOR UNKNOWN INDICATION
     Dosage: 600 MG, QD
     Route: 042
     Dates: start: 19970801, end: 19970805
  6. SODIUM THIOSULFATE [Concomitant]
     Active Substance: SODIUM THIOSULFATE
     Indication: PRODUCT USED FOR UNKNOWN INDICATION
     Dosage: 8 G, UNK
     Route: 065
  7. BRIPLATIN [Suspect]
     Active Substance: CISPLATIN
     Indication: PRODUCT USED FOR UNKNOWN INDICATION
     Dosage: 60 MG, QD
     Route: 013
     Dates: start: 19970731, end: 19970731
  8. 5-FU                               /00098801/ [Suspect]
     Active Substance: FLUOROURACIL
     Indication: PRODUCT USED FOR UNKNOWN INDICATION
     Dosage: 900 MG, QD
     Route: 042
     Dates: start: 19970611, end: 19970615

REACTIONS (4)
  - Diarrhoea [Recovered/Resolved]
  - Vocal cord paralysis [Not Recovered/Not Resolved]
  - Disseminated intravascular coagulation [Fatal]
  - Pneumonia [Fatal]

NARRATIVE: CASE EVENT DATE: 19970403
